FAERS Safety Report 9987480 (Version 1)
Quarter: 2014Q1

REPORT INFORMATION
  Report Type: Spontaneous
  Country: US (occurrence: US)
  Receive Date: 20140307
  Receipt Date: 20140307
  Transmission Date: 20141002
  Serious: No
  Sender: FDA-Public Use
  Company Number: US-AMGEN-USASP2014011682

PATIENT
  Age: 41 Year
  Sex: Female

DRUGS (1)
  1. ENBREL [Suspect]
     Indication: PSORIATIC ARTHROPATHY
     Dosage: 50 MG, QWK
     Route: 065
     Dates: start: 20100831

REACTIONS (8)
  - Pain [Recovered/Resolved]
  - Burning sensation [Recovered/Resolved]
  - Joint range of motion decreased [Recovered/Resolved]
  - Productive cough [Recovered/Resolved]
  - Headache [Recovered/Resolved]
  - Sensation of pressure [Recovered/Resolved]
  - Paranasal sinus hypersecretion [Recovered/Resolved]
  - Herpes zoster [Recovered/Resolved]
